FAERS Safety Report 6046592-0 (Version None)
Quarter: 2009Q1

REPORT INFORMATION
  Report Type: 
  Country: None (occurrence: None)
  Receive Date: 20090122
  Receipt Date: 20090112
  Transmission Date: 20090719
  Serious: Yes (Hospitalization, Other)
  Sender: FDA-Public Use
  Company Number: PHBS2009US00447

PATIENT
  Age: 41 Year
  Sex: Male

DRUGS (6)
  1. CLOZAPINE [Suspect]
     Indication: SCHIZOAFFECTIVE DISORDER
     Dosage: 300 MG/DAY
     Route: 065
  2. CLOZAPINE [Suspect]
     Dosage: 400 MG/DAY
  3. CLOZAPINE [Suspect]
     Dosage: 75 MG/DAY
  4. RISPERIDONE [Concomitant]
     Indication: SCHIZOAFFECTIVE DISORDER
     Dosage: 6 MG/DAY
     Route: 065
  5. LITHIUM [Concomitant]
     Dosage: 1200 MG/DAY
  6. PROPRANOLOL [Concomitant]
     Indication: AKATHISIA
     Dosage: 80 MG/DAY

REACTIONS (15)
  - ANTIPSYCHOTIC DRUG LEVEL INCREASED [None]
  - CACHEXIA [None]
  - CONFUSIONAL STATE [None]
  - DEHYDRATION [None]
  - DISORIENTATION [None]
  - DIZZINESS [None]
  - DYSARTHRIA [None]
  - GAIT DISTURBANCE [None]
  - LETHARGY [None]
  - LEUKOCYTOSIS [None]
  - LOSS OF CONSCIOUSNESS [None]
  - ORTHOSTATIC HYPOTENSION [None]
  - PALLOR [None]
  - PETIT MAL EPILEPSY [None]
  - TREMOR [None]
